FAERS Safety Report 8121463-4 (Version None)
Quarter: 2012Q1

REPORT INFORMATION
  Report Type: 
  Country: None (occurrence: None)
  Receive Date: 20120208
  Receipt Date: 20120203
  Transmission Date: 20120608
  Serious: No
  Sender: FDA-Public Use
  Company Number: US-PFIZER INC-2012013170

PATIENT
  Sex: Female

DRUGS (2)
  1. KLONOPIN [Concomitant]
     Dosage: 0.5MG IN THE MORNING AND 1MG AT BEDTIME
  2. SERTRALINE HYDROCHLORIDE [Suspect]
     Dosage: 250 DAILY
     Route: 048
     Dates: start: 20100101

REACTIONS (2)
  - DRUG INEFFECTIVE [None]
  - TREMOR [None]
